FAERS Safety Report 21993033 (Version 3)
Quarter: 2024Q1

REPORT INFORMATION
  Report Type: Spontaneous
  Country: US (occurrence: US)
  Receive Date: 20230215
  Receipt Date: 20240223
  Transmission Date: 20240410
  Serious: Yes (Death, Hospitalization)
  Sender: FDA-Public Use
  Company Number: US-GBT-020085

PATIENT
  Age: 40 Year
  Sex: Male

DRUGS (1)
  1. OXBRYTA [Suspect]
     Active Substance: VOXELOTOR
     Indication: Sickle cell disease
     Dosage: 500MG, 3 TABLETS ONCE DAILY, ORALLY
     Route: 048
     Dates: start: 2020, end: 202312

REACTIONS (2)
  - Decerebrate posture [Fatal]
  - Sickle cell anaemia with crisis [Unknown]

NARRATIVE: CASE EVENT DATE: 20221201
